FAERS Safety Report 12631336 (Version 2)
Quarter: 2016Q3

REPORT INFORMATION
  Report Type: Spontaneous
  Country: US (occurrence: US)
  Receive Date: 20160808
  Receipt Date: 20160808
  Transmission Date: 20161109
  Serious: No
  Sender: FDA-Public Use
  Company Number: US-BEH-2015053400

PATIENT
  Sex: Female
  Weight: 99 kg

DRUGS (26)
  1. DIPHENHYDRAMINE. [Concomitant]
     Active Substance: DIPHENHYDRAMINE
  2. ZETIA [Concomitant]
     Active Substance: EZETIMIBE
  3. SINGULAIR [Concomitant]
     Active Substance: MONTELUKAST SODIUM
  4. NEXIUM [Concomitant]
     Active Substance: ESOMEPRAZOLE MAGNESIUM
  5. DULERA [Concomitant]
     Active Substance: FORMOTEROL FUMARATE DIHYDRATE\MOMETASONE FUROATE
  6. ACETAMINOPHEN. [Concomitant]
     Active Substance: ACETAMINOPHEN
  7. EPIPEN [Concomitant]
     Active Substance: EPINEPHRINE
     Indication: ANAPHYLACTIC REACTION
  8. LEVAQUIN [Concomitant]
     Active Substance: LEVOFLOXACIN
  9. CLONAZEPAM. [Concomitant]
     Active Substance: CLONAZEPAM
  10. HIZENTRA [Suspect]
     Active Substance: HUMAN IMMUNOGLOBULIN G
     Indication: HYPOGAMMAGLOBULINAEMIA
     Route: 058
  11. LMX [Concomitant]
     Active Substance: LIDOCAINE
  12. BACTRIM [Concomitant]
     Active Substance: SULFAMETHOXAZOLE\TRIMETHOPRIM
  13. TAMIFLU [Concomitant]
     Active Substance: OSELTAMIVIR PHOSPHATE
  14. DIOVAN [Concomitant]
     Active Substance: VALSARTAN
  15. LIDOCAINE/PRILOCAINE [Concomitant]
     Active Substance: LIDOCAINE\PRILOCAINE
  16. METFORMIN HCL [Concomitant]
     Active Substance: METFORMIN HYDROCHLORIDE
  17. PREDNISONE. [Concomitant]
     Active Substance: PREDNISONE
  18. ONDANSETRON [Concomitant]
     Active Substance: ONDANSETRON
  19. NYSTATIN. [Concomitant]
     Active Substance: NYSTATIN
  20. NYSTATIN. [Concomitant]
     Active Substance: NYSTATIN
  21. NASONEX [Concomitant]
     Active Substance: MOMETASONE FUROATE
  22. CLINDAMYCIN [Concomitant]
     Active Substance: CLINDAMYCIN\CLINDAMYCIN PHOSPHATE
  23. AUGMENTIN [Concomitant]
     Active Substance: AMOXICILLIN\CLAVULANATE POTASSIUM
  24. BYSTOLIC [Concomitant]
     Active Substance: NEBIVOLOL HYDROCHLORIDE
  25. ALBUTEROL. [Concomitant]
     Active Substance: ALBUTEROL
  26. HIZENTRA [Suspect]
     Active Substance: HUMAN IMMUNOGLOBULIN G
     Indication: IMMUNODEFICIENCY
     Route: 058

REACTIONS (2)
  - Nausea [Unknown]
  - Infusion site pruritus [Unknown]
